FAERS Safety Report 6738155-6 (Version None)
Quarter: 2010Q2

REPORT INFORMATION
  Report Type: 
  Country: None (occurrence: None)
  Receive Date: 20100524
  Receipt Date: 20100514
  Transmission Date: 20101027
  Serious: Yes (Other)
  Sender: FDA-Public Use
  Company Number: BR-ASTRAZENECA-2010SE21877

PATIENT
  Age: 55 Year
  Sex: Female
  Weight: 69 kg

DRUGS (5)
  1. SYMBICORT [Suspect]
     Indication: ASTHMA
     Dosage: 160/4.5 MCG
     Route: 055
     Dates: start: 20040101
  2. SYMBICORT [Suspect]
     Dosage: 160/4.5 MCG
     Route: 055
  3. SYMBICORT [Suspect]
     Dosage: 320/9 MCG
     Route: 055
     Dates: end: 20100501
  4. ALENIA [Concomitant]
     Route: 055
  5. SERETIDE [Concomitant]
     Route: 055

REACTIONS (3)
  - ATRIAL SEPTAL DEFECT [None]
  - ELECTROCARDIOGRAM ABNORMAL [None]
  - JOINT DISLOCATION [None]
